FAERS Safety Report 4428618-0 (Version None)
Quarter: 2004Q3

REPORT INFORMATION
  Report Type: 
  Country: None (occurrence: None)
  Receive Date: 20040818
  Receipt Date: 20030610
  Transmission Date: 20050211
  Serious: Yes (Disabling)
  Sender: FDA-Public Use
  Company Number: US-BRISTOL-MYERS SQUIBB COMPANY-12297974

PATIENT
  Age: 38 Year
  Sex: Male
  Weight: 66 kg

DRUGS (1)
  1. TEQUIN [Suspect]
     Indication: PROSTATITIS
     Route: 048
     Dates: start: 20030501, end: 20030101

REACTIONS (2)
  - ARTHRALGIA [None]
  - TENDONITIS [None]
